FAERS Safety Report 4485066-5 (Version None)
Quarter: 2004Q4

REPORT INFORMATION
  Report Type: 
  Country: None (occurrence: None)
  Receive Date: 20041022
  Receipt Date: 20041022
  Transmission Date: 20050328
  Serious: Yes (Hospitalization)
  Sender: FDA-Public Use
  Company Number: None

PATIENT
  Age: 82 Year
  Sex: Male
  Weight: 85.1855 kg

DRUGS (15)
  1. CARBOPLATIN [Suspect]
     Indication: LUNG NEOPLASM MALIGNANT
     Dosage: 445MG IV Q3 WEEKS
     Route: 042
     Dates: start: 20040728
  2. CARBOPLATIN [Suspect]
     Indication: LUNG NEOPLASM MALIGNANT
     Dosage: 445MG IV Q3 WEEKS
     Route: 042
     Dates: start: 20040818
  3. CARBOPLATIN [Suspect]
     Indication: LUNG NEOPLASM MALIGNANT
     Dosage: 445MG IV Q3 WEEKS
     Route: 042
     Dates: start: 20040908
  4. CARBOPLATIN [Suspect]
     Indication: LUNG NEOPLASM MALIGNANT
     Dosage: 445MG IV Q3 WEEKS
     Route: 042
     Dates: start: 20040929
  5. GEMZAR [Suspect]
     Indication: LUNG NEOPLASM MALIGNANT
     Dosage: 1900MG IV DAY 1 AND 8 Q3 WEEKS
     Route: 042
     Dates: start: 20040728
  6. GEMZAR [Suspect]
     Indication: LUNG NEOPLASM MALIGNANT
     Dosage: 1900MG IV DAY 1 AND 8 Q3 WEEKS
     Route: 042
     Dates: start: 20040804
  7. GEMZAR [Suspect]
     Indication: LUNG NEOPLASM MALIGNANT
     Dosage: 1900MG IV DAY 1 AND 8 Q3 WEEKS
     Route: 042
     Dates: start: 20040818
  8. GEMZAR [Suspect]
     Indication: LUNG NEOPLASM MALIGNANT
     Dosage: 1900MG IV DAY 1 AND 8 Q3 WEEKS
     Route: 042
     Dates: start: 20040825
  9. GEMZAR [Suspect]
     Indication: LUNG NEOPLASM MALIGNANT
     Dosage: 1900MG IV DAY 1 AND 8 Q3 WEEKS
     Route: 042
     Dates: start: 20040908
  10. GEMZAR [Suspect]
     Indication: LUNG NEOPLASM MALIGNANT
     Dosage: 1900MG IV DAY 1 AND 8 Q3 WEEKS
     Route: 042
     Dates: start: 20040915
  11. GEMZAR [Suspect]
     Indication: LUNG NEOPLASM MALIGNANT
     Dosage: 1900MG IV DAY 1 AND 8 Q3 WEEKS
     Route: 042
     Dates: start: 20040929
  12. METOPROLOL SUCCINATE [Concomitant]
  13. BEXTRA [Concomitant]
  14. ZOFRAN [Concomitant]
  15. PHENERGAN [Concomitant]

REACTIONS (5)
  - ANAEMIA [None]
  - CHEST PAIN [None]
  - CORONARY ARTERY DISEASE [None]
  - PALPITATIONS [None]
  - TACHYCARDIA [None]
